FAERS Safety Report 9960190 (Version 1)
Quarter: 2014Q1

REPORT INFORMATION
  Report Type: Spontaneous
  Country: US (occurrence: None)
  Receive Date: 20140228
  Receipt Date: 20140228
  Transmission Date: 20141002
  Serious: Yes (Hospitalization)
  Sender: FDA-Public Use
  Company Number: UTC-045190

PATIENT
  Age: 65 Year
  Sex: Female

DRUGS (4)
  1. REMODULIN (2.5 MILLIGRAM/MILLILITERS, INJECTION FOR INFUSION) (TREPROSTINIL SODIUM) [Suspect]
     Indication: PULMONARY ARTERIAL HYPERTENSION
     Dosage: 64.8 UG/KG (0.045 UG/KG, 1 IN 1 MIN), INTRAVENOUS DRIP
     Route: 041
     Dates: start: 20130509
  2. COUMADIN (WARFARIN SODIUM) [Concomitant]
  3. SILDENAFIL (UNKNOWN) [Concomitant]
  4. REVATIO (SILDENAFIL CITRATE) (UNKNOWN) [Concomitant]

REACTIONS (3)
  - Pain in extremity [None]
  - Fall [None]
  - Contusion [None]
